FAERS Safety Report 4929752-9 (Version None)
Quarter: 2006Q1

REPORT INFORMATION
  Report Type: 
  Country: None (occurrence: None)
  Receive Date: 20060224
  Receipt Date: 20060215
  Transmission Date: 20060701
  Serious: Yes (Death, Other)
  Sender: FDA-Public Use
  Company Number: 2006-02-0915

PATIENT

DRUGS (3)
  1. INTEGRILIN [Suspect]
     Indication: CORONARY ARTERY SURGERY
     Dosage: INTRAVENOUS
     Route: 042
  2. PLAVIX [Suspect]
     Dosage: UNKNOWN
     Route: 065
  3. ASPIRIN [Suspect]
     Dosage: UNKNOWN
     Route: 065

REACTIONS (3)
  - METABOLIC ACIDOSIS [None]
  - RENAL FAILURE ACUTE [None]
  - THROMBOTIC THROMBOCYTOPENIC PURPURA [None]
